FAERS Safety Report 8428018-2 (Version None)
Quarter: 2012Q2

REPORT INFORMATION
  Report Type: 
  Country: None (occurrence: None)
  Receive Date: 20120611
  Receipt Date: 20120531
  Transmission Date: 20120825
  Serious: Yes (Other)
  Sender: FDA-Public Use
  Company Number: JP-JNJFOC-20120600931

PATIENT

DRUGS (2)
  1. ITRACONAZOLE [Suspect]
     Indication: PRODUCT USED FOR UNKNOWN INDICATION
     Route: 048
  2. ONCOVIN [Interacting]
     Indication: PRODUCT USED FOR UNKNOWN INDICATION
     Route: 042

REACTIONS (5)
  - MYALGIA [None]
  - TREATMENT NONCOMPLIANCE [None]
  - DRUG INTERACTION [None]
  - PAIN IN EXTREMITY [None]
  - MONOPLEGIA [None]
